FAERS Safety Report 25416830 (Version 1)
Quarter: 2025Q2

REPORT INFORMATION
  Report Type: Spontaneous
  Country: RU (occurrence: RU)
  Receive Date: 20250610
  Receipt Date: 20250610
  Transmission Date: 20250717
  Serious: Yes (Other)
  Sender: SANDOZ
  Company Number: RU-002147023-NVSC2023RU148983

PATIENT
  Age: 56 Year
  Sex: Female

DRUGS (6)
  1. METHOTREXATE [Suspect]
     Active Substance: METHOTREXATE
     Indication: Immune-mediated myositis
     Dosage: GRADUAL INCREASE TO 10 MG, QW
     Route: 065
     Dates: start: 2021, end: 2021
  2. METHOTREXATE [Suspect]
     Active Substance: METHOTREXATE
     Dosage: RESTARTED AT LOWEST DOSE OF 5 MG, QD
     Route: 065
  3. METHOTREXATE [Suspect]
     Active Substance: METHOTREXATE
     Indication: Necrotising myositis
     Route: 065
     Dates: start: 2021, end: 2021
  4. METHYLPREDNISOLONE [Concomitant]
     Active Substance: METHYLPREDNISOLONE
     Indication: Immune-mediated myositis
     Route: 065
  5. RITUXIMAB [Concomitant]
     Active Substance: RITUXIMAB
     Indication: Necrotising myositis
     Route: 065
  6. RITUXIMAB [Concomitant]
     Active Substance: RITUXIMAB
     Indication: Immune-mediated myositis

REACTIONS (2)
  - Agranulocytosis [Unknown]
  - Product use in unapproved indication [Unknown]

NARRATIVE: CASE EVENT DATE: 20210101
